FAERS Safety Report 7668507-1 (Version None)
Quarter: 2011Q3

REPORT INFORMATION
  Report Type: 
  Country: None (occurrence: None)
  Receive Date: 20110808
  Receipt Date: 20110803
  Transmission Date: 20111222
  Serious: Yes (Other)
  Sender: FDA-Public Use
  Company Number: US-AMGEN-USASP2011039567

PATIENT
  Sex: Male

DRUGS (4)
  1. RITUXIMAB [Concomitant]
  2. NPLATE [Suspect]
     Indication: AUTOIMMUNE DISORDER
     Dates: start: 20110104, end: 20110429
  3. CORTICOSTEROIDS [Concomitant]
  4. IVIGLOB-EX [Concomitant]

REACTIONS (3)
  - EPSTEIN-BARR VIRUS ASSOCIATED LYMPHOPROLIFERATIVE DISORDER [None]
  - PROTEINURIA [None]
  - NEPHRITIS [None]
